FAERS Safety Report 6217222-X (Version None)
Quarter: 2009Q2

REPORT INFORMATION
  Report Type: 
  Country: None (occurrence: None)
  Receive Date: 20090608
  Receipt Date: 20090527
  Transmission Date: 20091009
  Serious: Yes (Other)
  Sender: FDA-Public Use
  Company Number: FI-PFIZER INC-2009218953

PATIENT
  Age: 44 Year

DRUGS (3)
  1. LYRICA [Suspect]
     Indication: NEURALGIA
     Dosage: 250 MG, 1X/DAY
     Route: 048
     Dates: start: 20090408, end: 20090519
  2. ACETAMINOPHEN [Concomitant]
     Route: 048
  3. TIZANIDINE HCL [Concomitant]
     Route: 048

REACTIONS (11)
  - EAR DISCOMFORT [None]
  - HYPERACUSIS [None]
  - INSOMNIA [None]
  - MENTAL IMPAIRMENT [None]
  - MUSCLE SPASTICITY [None]
  - MUSCULOSKELETAL STIFFNESS [None]
  - NAUSEA [None]
  - PHOTOPHOBIA [None]
  - SINUS HEADACHE [None]
  - SPEECH DISORDER [None]
  - VISION BLURRED [None]
